FAERS Safety Report 8421531 (Version 3)
Quarter: 2013Q2

REPORT INFORMATION
  Report Type: Report from Study
  Country: MX (occurrence: MX)
  Receive Date: 20120222
  Receipt Date: 20130422
  Transmission Date: 20140414
  Serious: Yes (Death, Other)
  Sender: FDA-Public Use
  Company Number: PHHY2012MX014447

PATIENT
  Age: 64 Year
  Sex: Male

DRUGS (2)
  1. CO-DIOVAN [Suspect]
     Indication: HYPERTENSION
     Dosage: 1 DF, (160 MG VALSAR/ 12.5 MG HYDROCHLO) PER DAY
     Route: 048
     Dates: start: 201111
  2. HORMONES NOS [Concomitant]
     Indication: PROSTATE CANCER
     Dates: start: 2011

REACTIONS (3)
  - Death [Fatal]
  - Metastases to bone [Not Recovered/Not Resolved]
  - Asthenia [Not Recovered/Not Resolved]
